FAERS Safety Report 9485835 (Version 1)
Quarter: 2013Q3

REPORT INFORMATION
  Report Type: Report from Study
  Country: BR (occurrence: BR)
  Receive Date: 20130829
  Receipt Date: 20130829
  Transmission Date: 20140515
  Serious: Yes (Hospitalization, Other)
  Sender: FDA-Public Use
  Company Number: PHHY2013BR093596

PATIENT
  Sex: Female
  Weight: 70 kg

DRUGS (1)
  1. EXELON PATCH [Suspect]
     Indication: DEMENTIA WITH LEWY BODIES
     Dosage: 9.5 MG, DAILY
     Route: 062

REACTIONS (7)
  - Eating disorder [Recovering/Resolving]
  - Vomiting [Recovering/Resolving]
  - Nausea [Recovering/Resolving]
  - Abdominal discomfort [Recovering/Resolving]
  - Aggression [Recovering/Resolving]
  - Hypertension [Recovering/Resolving]
  - Malaise [Recovering/Resolving]
